FAERS Safety Report 23791353 (Version 1)
Quarter: 2024Q2

REPORT INFORMATION
  Report Type: Spontaneous
  Country: FR (occurrence: FR)
  Receive Date: 20240428
  Receipt Date: 20240428
  Transmission Date: 20240716
  Serious: Yes (Other)
  Sender: FDA-Public Use
  Company Number: FR-TAKEDA-2024TUS040365

PATIENT
  Age: 56 Year
  Sex: Male

DRUGS (1)
  1. FEBUXOSTAT [Suspect]
     Active Substance: FEBUXOSTAT
     Indication: Hyperuricaemia
     Dosage: 120 MILLIGRAM
     Route: 048

REACTIONS (1)
  - Gouty tophus [Not Recovered/Not Resolved]

NARRATIVE: CASE EVENT DATE: 20150101
